FAERS Safety Report 6597065 (Version 2)
Quarter: 2013Q1

REPORT INFORMATION
  Report Type: Spontaneous
  Country: US (occurrence: US)
  Receive Date: 20080328
  Receipt Date: 20130321
  Transmission Date: 20140127
  Serious: Yes (Other)
  Sender: FDA-Public Use
  Company Number: US-JNJFOC-20080305214

PATIENT
  Sex: Female
  Weight: 86.18 kg

DRUGS (2)
  1. IBUPROFEN 800 MG [Suspect]
     Indication: FIBROMYALGIA
     Route: 048
  2. METHADONE [Concomitant]

REACTIONS (3)
  - Pneumonia [Unknown]
  - Fibromyalgia [Not Recovered/Not Resolved]
  - Asthenia [Not Recovered/Not Resolved]
